FAERS Safety Report 14962017 (Version 2)
Quarter: 2018Q3

REPORT INFORMATION
  Report Type: Spontaneous
  Country: DE (occurrence: DE)
  Receive Date: 20180601
  Receipt Date: 20180912
  Transmission Date: 20181010
  Serious: Yes (Hospitalization, Other)
  Sender: FDA-Public Use
  Company Number: DE-HORMOSAN-2018-04043

PATIENT
  Age: 23 Year
  Sex: Male

DRUGS (1)
  1. QUETIAPIN?HORMOSAN 200 MG RETARDTABLETTEN [Suspect]
     Active Substance: QUETIAPINE FUMARATE
     Indication: MENTAL DISORDER
     Dosage: 200 MG, QD (DAILY IN THE EVENINGS)
     Route: 048

REACTIONS (4)
  - Fatigue [Unknown]
  - Pulmonary embolism [Not Recovered/Not Resolved]
  - Chest pain [Not Recovered/Not Resolved]
  - Ligament rupture [Unknown]

NARRATIVE: CASE EVENT DATE: 20180509
